FAERS Safety Report 12797935 (Version 4)
Quarter: 2017Q1

REPORT INFORMATION
  Report Type: Spontaneous
  Country: US (occurrence: US)
  Receive Date: 20160930
  Receipt Date: 20170216
  Transmission Date: 20170428
  Serious: Yes (Life-Threatening, Other)
  Sender: FDA-Public Use
  Company Number: US-ALEXION PHARMACEUTICALS INC.-A201607251

PATIENT
  Sex: Female

DRUGS (1)
  1. SOLIRIS [Suspect]
     Active Substance: ECULIZUMAB
     Indication: PAROXYSMAL NOCTURNAL HAEMOGLOBINURIA
     Dosage: UNK
     Route: 042
     Dates: end: 2015

REACTIONS (9)
  - Paroxysmal nocturnal haemoglobinuria [Unknown]
  - Acute myeloid leukaemia [Unknown]
  - Disease progression [Unknown]
  - Cytopenia [Unknown]
  - Blood bilirubin increased [Unknown]
  - Drug ineffective [Unknown]
  - Myelodysplastic syndrome [Not Recovered/Not Resolved]
  - Reticulocyte count increased [Unknown]
  - Gene mutation [Not Recovered/Not Resolved]

NARRATIVE: CASE EVENT DATE: 201609
